FAERS Safety Report 5139421-0 (Version None)
Quarter: 2006Q4

REPORT INFORMATION
  Report Type: 
  Country: None (occurrence: None)
  Receive Date: 20061030
  Receipt Date: 20060125
  Transmission Date: 20070319
  Serious: No
  Sender: FDA-Public Use
  Company Number: US-GLAXOSMITHKLINE-A0590882A

PATIENT
  Age: 54 Year
  Sex: Female

DRUGS (8)
  1. SEREVENT [Suspect]
     Indication: CHRONIC OBSTRUCTIVE PULMONARY DISEASE
     Route: 055
  2. ALBUTEROL [Concomitant]
  3. SPIRIVA [Concomitant]
  4. VITAMINS [Concomitant]
  5. FOSAMAX [Concomitant]
  6. LEVOXYL [Concomitant]
  7. THEOPHYLLINE [Concomitant]
  8. ANTIBIOTICS [Concomitant]

REACTIONS (2)
  - PHARMACEUTICAL PRODUCT COMPLAINT [None]
  - RESPIRATORY TRACT INFECTION VIRAL [None]
